FAERS Safety Report 14020179 (Version 1)
Quarter: 2017Q3

REPORT INFORMATION
  Report Type: Report from Study
  Country: None (occurrence: FR)
  Receive Date: 20170928
  Receipt Date: 20170928
  Transmission Date: 20171128
  Serious: Yes (Other)
  Sender: FDA-Public Use
  Company Number: FR-ABBVIE-17P-056-2112143-00

PATIENT
  Age: 68 Year
  Sex: Male

DRUGS (2)
  1. VENCLYXTO [Suspect]
     Active Substance: VENETOCLAX
     Indication: CHRONIC LYMPHOCYTIC LEUKAEMIA
     Route: 048
     Dates: start: 201702, end: 201707
  2. VENCLYXTO [Suspect]
     Active Substance: VENETOCLAX
     Dosage: PROGRESSIVE INCREASE OF DOSES FROM 20 MG TO 400 MG WHITHIN 5 WEEKS.
     Route: 048
     Dates: start: 201707

REACTIONS (2)
  - Cardiac failure [Unknown]
  - Acute pulmonary oedema [Recovered/Resolved]

NARRATIVE: CASE EVENT DATE: 201702
